FAERS Safety Report 5572757-8 (Version None)
Quarter: 2007Q4

REPORT INFORMATION
  Report Type: 
  Country: None (occurrence: None)
  Receive Date: 20071222
  Receipt Date: 20071213
  Transmission Date: 20080405
  Serious: Yes (Other)
  Sender: FDA-Public Use
  Company Number: US-PFIZER INC-2007105684

PATIENT
  Sex: Female

DRUGS (1)
  1. LIPITOR [Suspect]
     Indication: BLOOD CHOLESTEROL INCREASED
     Dates: start: 20020101, end: 20031105

REACTIONS (8)
  - ASTHENIA [None]
  - GENERAL PHYSICAL HEALTH DETERIORATION [None]
  - KNEE ARTHROPLASTY [None]
  - MUSCLE ATROPHY [None]
  - MUSCLE INJURY [None]
  - MUSCULAR WEAKNESS [None]
  - MYALGIA [None]
  - PARALYSIS [None]
